FAERS Safety Report 20475489 (Version 2)
Quarter: 2022Q1

REPORT INFORMATION
  Report Type: Spontaneous
  Country: FR (occurrence: FR)
  Receive Date: 20220215
  Receipt Date: 20220225
  Transmission Date: 20220423
  Serious: Yes (Hospitalization, Other)
  Sender: FDA-Public Use
  Company Number: None

PATIENT
  Age: 23 Year
  Sex: Female
  Weight: 55 kg

DRUGS (8)
  1. VALIUM [Suspect]
     Active Substance: DIAZEPAM
     Indication: Bipolar disorder
     Dosage: 20 DROPLETS 3 TIMES A DAY
     Route: 048
     Dates: start: 20220104
  2. ABILIFY [Suspect]
     Active Substance: ARIPIPRAZOLE
     Indication: Bipolar disorder
     Route: 048
     Dates: start: 20220104, end: 20220111
  3. LOXAPINE [Suspect]
     Active Substance: LOXAPINE
     Indication: Bipolar disorder
     Dosage: 200GTE/J 50-50-100, 50 DROPLETS 4 TIMES A DAY
     Route: 048
     Dates: start: 20220104
  4. TROPATEPINE HYDROCHLORIDE [Suspect]
     Active Substance: TROPATEPINE HYDROCHLORIDE
     Indication: Bipolar disorder
     Dosage: 10 MG TABLETS ADMINISTERED ORALLY AT A DOSE OF 10 ML TWICE A DAY
     Route: 048
     Dates: start: 20220104
  5. TERALITHE [Suspect]
     Active Substance: LITHIUM CARBONATE
     Indication: Bipolar disorder
     Route: 048
     Dates: start: 20220111
  6. ZOPICLONE [Suspect]
     Active Substance: ZOPICLONE
     Indication: Insomnia
     Dosage: 1 IN THE EVENING IF NECESSARY
     Route: 048
     Dates: start: 20220104
  7. RISPERIDONE [Suspect]
     Active Substance: RISPERIDONE
     Indication: Bipolar disorder
     Dosage: 8ML TWICE A DAY
     Route: 048
  8. POLYETHYLENE GLYCOLS [Concomitant]
     Active Substance: POLYETHYLENE GLYCOLS
     Indication: Constipation
     Dosage: 6 SACHET JOUR 2-2-2
     Route: 048

REACTIONS (5)
  - Septic shock [Not Recovered/Not Resolved]
  - Constipation [Not Recovered/Not Resolved]
  - Colectomy total [Not Recovered/Not Resolved]
  - Intestinal obstruction [Not Recovered/Not Resolved]
  - Myocarditis septic [Not Recovered/Not Resolved]
